FAERS Safety Report 21048853 (Version 2)
Quarter: 2022Q3

REPORT INFORMATION
  Report Type: Spontaneous
  Country: US (occurrence: US)
  Receive Date: 20220706
  Receipt Date: 20220722
  Transmission Date: 20221026
  Serious: No
  Sender: FDA-Public Use
  Company Number: US-PFIZER INC-202200923420

PATIENT
  Age: 44 Year
  Sex: Female
  Weight: 65.76 kg

DRUGS (18)
  1. PAXLOVID [Suspect]
     Active Substance: NIRMATRELVIR\RITONAVIR
     Indication: COVID-19 treatment
     Dosage: [PF-07321332 300 MG]/[RITONAVIR 100 MG]; 2X/DAY;/ UNK (100MGX2 EVERY 4 MONTH)
     Route: 048
     Dates: start: 20220531, end: 20220605
  2. DEXAMETHASONE [Concomitant]
     Active Substance: DEXAMETHASONE
     Indication: Arthritis
     Dosage: 1 MG EVERY ANL
     Dates: start: 2014
  3. DEXAMETHASONE [Concomitant]
     Active Substance: DEXAMETHASONE
     Indication: Rheumatoid arthritis
     Dosage: 2 MG, 1X/DAY
     Dates: start: 20220615, end: 20220619
  4. HYDROXYCHLOROQUINE [Concomitant]
     Active Substance: HYDROXYCHLOROQUINE
     Indication: Arthritis
     Dosage: 400 MG, DAILY
     Dates: start: 2014
  5. CYMBALTA [Concomitant]
     Active Substance: DULOXETINE HYDROCHLORIDE
     Dosage: 40 MG, DAILY
  6. ACYCLOVIR [Concomitant]
     Active Substance: ACYCLOVIR
     Indication: Herpes zoster
     Dosage: 800 MG, 2X/DAY
     Dates: start: 2016
  7. OMEPRAZOLE [Concomitant]
     Active Substance: OMEPRAZOLE
     Dosage: 40 MG, DAILY
  8. TRAZODONE [Concomitant]
     Active Substance: TRAZODONE HYDROCHLORIDE
     Dosage: 150 MG, DAILY (NIGHTLY)
  9. RITUXIMAB [Concomitant]
     Active Substance: RITUXIMAB
     Indication: Gastric disorder
     Dosage: 100 MG X2, EVERY 4 MONTHS
     Dates: start: 2000
  10. METHOTREXATE [Concomitant]
     Active Substance: METHOTREXATE
     Indication: Rheumatoid arthritis
     Dosage: 25 MG, WEEKLY
     Route: 058
     Dates: start: 2014
  11. LEFLUNOMIDE [Concomitant]
     Active Substance: LEFLUNOMIDE
     Indication: Rheumatoid arthritis
     Dosage: 100 MG, DAILY
  12. LEFLUNOMIDE [Concomitant]
     Active Substance: LEFLUNOMIDE
     Dosage: 10 MG, DAILY
     Dates: start: 2014
  13. PLAQUENIL [Concomitant]
     Active Substance: HYDROXYCHLOROQUINE SULFATE
     Dosage: 400 MG, DAILY
  14. CHLOROQUINE [Concomitant]
     Active Substance: CHLOROQUINE
     Indication: Arthritis
     Dosage: 400 MG, DAILY
     Dates: start: 2014
  15. AFRINE [Concomitant]
     Indication: Rhinorrhoea
     Dosage: UNK
  16. PLAGERINE [Concomitant]
     Indication: Rheumatoid arthritis
     Dosage: 400 MG, DAILY
     Dates: start: 2014
  17. LANSOPRAZOLE [Concomitant]
     Active Substance: LANSOPRAZOLE
     Indication: Impaired gastric emptying
     Dosage: 40 MG, 2X/DAY
     Dates: start: 2010
  18. LANSOPRAZOLE [Concomitant]
     Active Substance: LANSOPRAZOLE
     Indication: Gastrooesophageal reflux disease

REACTIONS (2)
  - COVID-19 [Recovered/Resolved]
  - Disease recurrence [Recovered/Resolved]

NARRATIVE: CASE EVENT DATE: 20220608
